FAERS Safety Report 19211937 (Version 1)
Quarter: 2021Q2

REPORT INFORMATION
  Report Type: Spontaneous
  Country: CA (occurrence: CA)
  Receive Date: 20210504
  Receipt Date: 20210504
  Transmission Date: 20210717
  Serious: Yes (Hospitalization, Other)
  Sender: FDA-Public Use
  Company Number: CA-PFIZER INC-2021465788

PATIENT

DRUGS (10)
  1. HUMIRA [Suspect]
     Active Substance: ADALIMUMAB
     Dosage: 1 EVERY 1 WEEKS
     Route: 058
  2. METHOTREXATE SODIUM. [Suspect]
     Active Substance: METHOTREXATE SODIUM
     Dosage: UNK
     Route: 048
  3. HUMIRA [Suspect]
     Active Substance: ADALIMUMAB
     Dosage: 1 EVERY 2 WEEKS
     Route: 058
  4. PREDNISONE. [Concomitant]
     Active Substance: PREDNISONE
  5. PANTOPRAZOLE [Concomitant]
     Active Substance: PANTOPRAZOLE
  6. CITALOPRAM [Concomitant]
     Active Substance: CITALOPRAM HYDROBROMIDE
     Dosage: UNK
  7. VYVANSE [Concomitant]
     Active Substance: LISDEXAMFETAMINE DIMESYLATE
  8. REMICADE [Concomitant]
     Active Substance: INFLIXIMAB
  9. CITALOPRAM [Concomitant]
     Active Substance: CITALOPRAM HYDROBROMIDE
     Dosage: UNK
  10. SULFASALAZINE. [Concomitant]
     Active Substance: SULFASALAZINE

REACTIONS (22)
  - Chest pain [Recovered/Resolved]
  - Depression [Recovered/Resolved]
  - Nausea [Recovered/Resolved]
  - Nodule [Recovered/Resolved]
  - Periportal oedema [Recovered/Resolved]
  - Abdominal pain [Recovered/Resolved]
  - Affective disorder [Recovered/Resolved]
  - Arthralgia [Recovered/Resolved]
  - Intervertebral disc protrusion [Recovered/Resolved]
  - Fatigue [Recovered/Resolved]
  - Osteosclerosis [Recovered/Resolved]
  - Pain [Recovered/Resolved]
  - Thrombosis [Recovered/Resolved]
  - Abdominal pain upper [Recovered/Resolved]
  - Tissue infiltration [Recovered/Resolved]
  - Musculoskeletal stiffness [Recovered/Resolved]
  - Dyspnoea [Recovered/Resolved]
  - Gastrointestinal disorder [Recovered/Resolved]
  - Haemorrhage [Recovered/Resolved]
  - Hepatitis acute [Recovered/Resolved]
  - Back pain [Recovered/Resolved]
  - Nail disorder [Recovered/Resolved]
